FAERS Safety Report 7093864-7 (Version None)
Quarter: 2010Q4

REPORT INFORMATION
  Report Type: 
  Country: None (occurrence: None)
  Receive Date: 20101110
  Receipt Date: 20101108
  Transmission Date: 20110411
  Serious: Yes (Life-Threatening)
  Sender: FDA-Public Use
  Company Number: B0633247A

PATIENT
  Sex: Male

DRUGS (8)
  1. AUGMENTIN '125' [Suspect]
     Indication: PROPHYLAXIS
     Dosage: 1UNIT SINGLE DOSE
     Route: 048
     Dates: start: 20090603, end: 20090603
  2. COAPROVEL [Concomitant]
     Route: 048
  3. TAHOR [Concomitant]
     Route: 048
  4. METFORMIN HCL [Concomitant]
     Route: 048
  5. SEGLOR [Concomitant]
     Route: 048
  6. AMLOR [Concomitant]
     Route: 048
  7. PLAVIX [Concomitant]
     Route: 048
  8. TAGAMET [Concomitant]
     Route: 065
     Dates: start: 20090603

REACTIONS (4)
  - ANAPHYLACTIC SHOCK [None]
  - BLOOD PRESSURE IMMEASURABLE [None]
  - MALAISE [None]
  - SKIN TEST POSITIVE [None]
